FAERS Safety Report 17148684 (Version 1)
Quarter: 2019Q4

REPORT INFORMATION
  Report Type: Report from Study
  Country: US (occurrence: US)
  Receive Date: 20191213
  Receipt Date: 20191213
  Transmission Date: 20200122
  Serious: Yes (Hospitalization, Other)
  Sender: FDA-Public Use
  Company Number: US-ROCHE-2225297

PATIENT
  Sex: Male

DRUGS (35)
  1. VALCYTE [Suspect]
     Active Substance: VALGANCICLOVIR HYDROCHLORIDE
     Indication: LUNG TRANSPLANT
     Route: 048
  2. AZITHROMYCIN ANHYDROUS. [Suspect]
     Active Substance: AZITHROMYCIN ANHYDROUS
     Indication: PRODUCT USED FOR UNKNOWN INDICATION
     Route: 065
  3. FLORINEF ACETATE [Concomitant]
     Active Substance: FLUDROCORTISONE ACETATE
     Dosage: DAILY
     Route: 048
  4. PROGRAF [Concomitant]
     Active Substance: TACROLIMUS
     Route: 048
  5. DAPSONE. [Concomitant]
     Active Substance: DAPSONE
     Dosage: AT EVENING
     Route: 048
  6. MYCOBUTIN [Concomitant]
     Active Substance: RIFABUTIN
     Route: 048
  7. CELLCEPT [Suspect]
     Active Substance: MYCOPHENOLATE MOFETIL\MYCOPHENOLATE MOFETIL HYDROCHLORIDE
     Route: 048
  8. FERROUS SULFATE. [Concomitant]
     Active Substance: FERROUS SULFATE
     Route: 048
  9. COREG [Concomitant]
     Active Substance: CARVEDILOL
     Route: 048
  10. ERGOCALCIFEROL. [Concomitant]
     Active Substance: ERGOCALCIFEROL
     Dosage: 50000 UNIT
     Route: 048
  11. ZITHROMAX [Concomitant]
     Active Substance: AZITHROMYCIN DIHYDRATE
     Route: 048
  12. XANAX [Concomitant]
     Active Substance: ALPRAZOLAM
     Indication: ANXIETY
     Dosage: AS NEEDED
     Route: 048
  13. PROGRAF [Concomitant]
     Active Substance: TACROLIMUS
     Dosage: DAILY FOR 30 DAYS
     Route: 048
  14. COZAAR [Concomitant]
     Active Substance: LOSARTAN POTASSIUM
     Dosage: 1 TABLET DAILY FOR 364 DAYS
     Route: 048
  15. PROTONIX [Concomitant]
     Active Substance: PANTOPRAZOLE SODIUM
     Dosage: 40MG ENTERIC COATED TABLET EVERY MORNING
     Route: 048
  16. OYSCO [Concomitant]
     Route: 048
  17. COZAAR [Concomitant]
     Active Substance: LOSARTAN POTASSIUM
     Dosage: 1 TABLET DAILY FOR 364 DAYS
     Route: 048
  18. VITAMIN D3 [Concomitant]
     Active Substance: CHOLECALCIFEROL
     Route: 048
  19. MIRALAX [Concomitant]
     Active Substance: POLYETHYLENE GLYCOL 3350
     Indication: CONSTIPATION
     Dosage: DAILY; AS NEEDED
     Route: 048
  20. MYFORTIC [Concomitant]
     Active Substance: MYCOPHENOLATE SODIUM
  21. PRAVACHOL [Concomitant]
     Active Substance: PRAVASTATIN SODIUM
     Route: 048
  22. REMERON [Concomitant]
     Active Substance: MIRTAZAPINE
  23. CELLCEPT [Suspect]
     Active Substance: MYCOPHENOLATE MOFETIL\MYCOPHENOLATE MOFETIL HYDROCHLORIDE
     Indication: LUNG TRANSPLANT
     Dosage: FROM MEDICATION LIST DATED 23/10/2018
     Route: 048
  24. CARTIA XT [Concomitant]
     Active Substance: DILTIAZEM HYDROCHLORIDE
     Dosage: DAILY
     Route: 048
  25. ATROVENT [Concomitant]
     Active Substance: IPRATROPIUM BROMIDE
     Indication: DYSPNOEA
     Dosage: 0.02% AS NEEDED
     Route: 055
  26. MYCOSTATIN [Concomitant]
     Active Substance: NYSTATIN
     Dosage: 100000 UNIT/ML SUSPENSION, TAKE 500000 UNITS
     Route: 048
  27. MUCOMYST [ACETYLCYSTEINE] [Concomitant]
  28. LASIX [Concomitant]
     Active Substance: FUROSEMIDE
     Route: 048
  29. ZYRTEC [Concomitant]
     Active Substance: CETIRIZINE HYDROCHLORIDE
  30. TYLENOL [Concomitant]
     Active Substance: ACETAMINOPHEN
     Indication: PAIN
     Dosage: AS NEEDED
     Route: 048
  31. TUMS EX [Concomitant]
     Active Substance: CALCIUM CARBONATE
     Dosage: CHEW 2 TABLETS NIGHTLY
     Route: 048
  32. ECOTRIN [Concomitant]
     Active Substance: ASPIRIN
     Dosage: DAILY
     Route: 048
  33. HYPERSAL [Concomitant]
     Active Substance: SODIUM CHLORIDE
     Dosage: 7 % SOLUTION FOR NEBULIZATION, VIAL
     Route: 065
  34. PROGRAF [Concomitant]
     Active Substance: TACROLIMUS
     Route: 048
  35. DELTASONE [Concomitant]
     Active Substance: PREDNISONE
     Route: 048

REACTIONS (18)
  - Rhinovirus infection [Unknown]
  - Off label use [Unknown]
  - Dysphonia [Unknown]
  - Chest pain [Unknown]
  - Dyspnoea [Unknown]
  - Rash [Unknown]
  - Rales [Unknown]
  - Fatigue [Unknown]
  - Actinic keratosis [Unknown]
  - Pneumonia staphylococcal [Unknown]
  - Cough [Unknown]
  - Diarrhoea [Unknown]
  - Mycobacterial infection [Unknown]
  - Vomiting [Unknown]
  - Chromaturia [Unknown]
  - Blood pressure increased [Unknown]
  - Intentional product use issue [Unknown]
  - Urinary tract infection [Unknown]
